FAERS Safety Report 20217200 (Version 1)
Quarter: 2021Q4

REPORT INFORMATION
  Report Type: Spontaneous
  Country: US (occurrence: US)
  Receive Date: 20211222
  Receipt Date: 20211222
  Transmission Date: 20220303
  Serious: No
  Sender: FDA-Public Use
  Company Number: US-BEH-2021139449

PATIENT
  Sex: Male

DRUGS (2)
  1. HIZENTRA [Suspect]
     Active Substance: HUMAN IMMUNOGLOBULIN G
     Indication: Immunodeficiency common variable
     Dosage: 25 GRAM (125 ML), BIW
     Route: 058
     Dates: start: 20181124
  2. CELEBREX [Concomitant]
     Active Substance: CELECOXIB

REACTIONS (1)
  - Injection site irritation [Not Recovered/Not Resolved]
